FAERS Safety Report 9037097 (Version 2)
Quarter: 2013Q2

REPORT INFORMATION
  Report Type: Spontaneous
  Country: US (occurrence: US)
  Receive Date: 20130129
  Receipt Date: 20130527
  Transmission Date: 20140414
  Serious: Yes (Life-Threatening, Hospitalization, Other)
  Sender: FDA-Public Use
  Company Number: US-009507513-1301USA011647

PATIENT
  Age: 27 Year
  Sex: Female
  Weight: 70.75 kg

DRUGS (1)
  1. NUVARING [Suspect]
     Indication: CONTRACEPTION
     Dosage: UNK
     Route: 067
     Dates: start: 20120419, end: 20130114

REACTIONS (1)
  - Pulmonary embolism [Recovered/Resolved]
